FAERS Safety Report 14786555 (Version 1)
Quarter: 2018Q2

REPORT INFORMATION
  Report Type: Spontaneous
  Country: US (occurrence: US)
  Receive Date: 20180420
  Receipt Date: 20180420
  Transmission Date: 20180711
  Serious: Yes (Death, Hospitalization, Other)
  Sender: FDA-Public Use
  Company Number: US-CELGENEUS-USA-20180406598

PATIENT
  Age: 70 Year
  Sex: Male

DRUGS (1)
  1. POMALYST [Suspect]
     Active Substance: POMALIDOMIDE
     Indication: PLASMA CELL MYELOMA
     Dosage: 1 MILLIGRAM
     Route: 048
     Dates: start: 20171123, end: 20180319

REACTIONS (5)
  - Death [Fatal]
  - Urethral haemorrhage [Unknown]
  - Pulseless electrical activity [Unknown]
  - Mental status changes [Unknown]
  - Seizure [Unknown]

NARRATIVE: CASE EVENT DATE: 201803
